FAERS Safety Report 13798094 (Version 1)
Quarter: 2017Q3

REPORT INFORMATION
  Report Type: Spontaneous
  Country: US (occurrence: US)
  Receive Date: 20170726
  Receipt Date: 20170726
  Transmission Date: 20171127
  Serious: Yes (Other)
  Sender: FDA-Public Use
  Company Number: None

PATIENT
  Sex: Female
  Weight: 60.75 kg

DRUGS (5)
  1. VITAMIN D [Concomitant]
     Active Substance: CHOLECALCIFEROL
  2. PROBIOTIC [Concomitant]
     Active Substance: PROBIOTICS NOS
  3. VALSARTAN. [Concomitant]
     Active Substance: VALSARTAN
  4. MULTIVITAMIN [Concomitant]
     Active Substance: VITAMINS
  5. ALENDRONATE SODIUM 70MG TAB [Suspect]
     Active Substance: ALENDRONATE SODIUM
     Indication: OSTEOPOROSIS
     Dosage: ?          QUANTITY:1 TABLET(S);?
     Route: 048
     Dates: start: 20150331, end: 20170615

REACTIONS (3)
  - Feeling abnormal [None]
  - Pain [None]
  - Indifference [None]

NARRATIVE: CASE EVENT DATE: 20160830
